FAERS Safety Report 10096700 (Version 1)
Quarter: 2014Q2

REPORT INFORMATION
  Report Type: Spontaneous
  Country: CH (occurrence: CH)
  Receive Date: 20140422
  Receipt Date: 20140422
  Transmission Date: 20141212
  Serious: Yes (Hospitalization)
  Sender: FDA-Public Use
  Company Number: CH-MYLANLABS-2014S1008460

PATIENT
  Sex: Male

DRUGS (15)
  1. CHLORAMBUCIL [Suspect]
     Indication: WALDENSTROM^S MACROGLOBULINAEMIA
     Route: 065
     Dates: start: 1994
  2. CHLORAMBUCIL [Suspect]
     Route: 065
     Dates: start: 1994
  3. PREDNISONE [Suspect]
     Indication: WALDENSTROM^S MACROGLOBULINAEMIA
     Route: 065
     Dates: start: 1994
  4. PREDNISONE [Suspect]
     Indication: IMMUNE THROMBOCYTOPENIC PURPURA
     Route: 065
     Dates: start: 1994
  5. PREDNISONE [Suspect]
     Indication: WALDENSTROM^S MACROGLOBULINAEMIA
     Route: 065
     Dates: start: 2007
  6. PREDNISONE [Suspect]
     Indication: IMMUNE THROMBOCYTOPENIC PURPURA
     Route: 065
     Dates: start: 2007
  7. RITUXIMAB [Suspect]
     Indication: WALDENSTROM^S MACROGLOBULINAEMIA
     Route: 065
     Dates: start: 2006, end: 2006
  8. FLUDARABINE [Suspect]
     Indication: WALDENSTROM^S MACROGLOBULINAEMIA
     Route: 065
     Dates: start: 2006
  9. FLUDARABINE [Suspect]
     Indication: OFF LABEL USE
     Route: 065
     Dates: start: 2006
  10. CYCLOPHOSPHAMIDE [Suspect]
     Indication: IMMUNE THROMBOCYTOPENIC PURPURA
     Route: 065
     Dates: start: 2007
  11. DOXORUBICIN [Suspect]
     Indication: HODGKIN^S DISEASE
     Dosage: PART OF ABVD CHEMOTHERAPY
     Route: 065
     Dates: start: 2009
  12. BLEOMYCIN [Suspect]
     Indication: HODGKIN^S DISEASE
     Dosage: PART OF ABVD CHEMOTHERAPY
     Route: 065
     Dates: start: 2009
  13. VINBLASTINE [Suspect]
     Indication: HODGKIN^S DISEASE
     Dosage: PART OF ABVD CHEMOTHERAPY
     Route: 065
     Dates: start: 2009
  14. DACARBAZINE [Suspect]
     Indication: HODGKIN^S DISEASE
     Dosage: PART OF ABVD CHEMOTHERAPY
     Route: 065
     Dates: start: 2009
  15. IMMUNE GLOBULIN [Concomitant]
     Indication: SECONDARY IMMUNODEFICIENCY
     Route: 042
     Dates: start: 2006

REACTIONS (4)
  - Secondary immunodeficiency [Unknown]
  - Pneumonia [Recovered/Resolved]
  - Rhodococcus infection [Recovered/Resolved]
  - Pneumonia [Unknown]
